FAERS Safety Report 23657900 (Version 1)
Quarter: 2024Q1

REPORT INFORMATION
  Report Type: Spontaneous
  Country: ES (occurrence: ES)
  Receive Date: 20240321
  Receipt Date: 20240321
  Transmission Date: 20240409
  Serious: Yes (Life-Threatening, Hospitalization, Other)
  Sender: FDA-Public Use
  Company Number: None

PATIENT
  Age: 75 Year
  Sex: Female
  Weight: 70 kg

DRUGS (2)
  1. DOCETAXEL [Suspect]
     Active Substance: DOCETAXEL\DOCETAXEL ANHYDROUS
     Indication: Lung adenocarcinoma
     Dosage: 105 UG/M2, QD
     Route: 042
     Dates: start: 20231122, end: 20231122
  2. AFATINIB DIMALEATE [Suspect]
     Active Substance: AFATINIB DIMALEATE
     Indication: Lung adenocarcinoma
     Dosage: 30 MG, QD
     Route: 048
     Dates: start: 20231108

REACTIONS (3)
  - Agranulocytosis [Recovered/Resolved]
  - Escherichia sepsis [Recovered/Resolved]
  - Anaemia [Recovered/Resolved]
